FAERS Safety Report 8340418-8 (Version None)
Quarter: 2012Q2

REPORT INFORMATION
  Report Type: 
  Country: None (occurrence: None)
  Receive Date: 20120507
  Receipt Date: 20120507
  Transmission Date: 20120825
  Serious: Yes (Other)
  Sender: FDA-Public Use
  Company Number: None

PATIENT
  Age: 55 Year
  Sex: Female
  Weight: 90.718 kg

DRUGS (1)
  1. RECLAST [Suspect]
     Indication: OSTEOPOROSIS
     Dosage: |DOSAGETEXT: IV|

REACTIONS (4)
  - PAIN IN JAW [None]
  - DEVICE EXPULSION [None]
  - TOOTH DISORDER [None]
  - TOOTH LOSS [None]
